FAERS Safety Report 13375545 (Version 2)
Quarter: 2017Q4

REPORT INFORMATION
  Report Type: Spontaneous
  Country: US (occurrence: US)
  Receive Date: 20170328
  Receipt Date: 20171016
  Transmission Date: 20180320
  Serious: Yes (Other)
  Sender: FDA-Public Use
  Company Number: US-ROCHE-1911170

PATIENT
  Age: 79 Year
  Sex: Female

DRUGS (9)
  1. VYTORIN [Concomitant]
     Active Substance: EZETIMIBE\SIMVASTATIN
     Dosage: 10-80MG
     Route: 065
  2. ESBRIET [Suspect]
     Active Substance: PIRFENIDONE
     Indication: IDIOPATHIC PULMONARY FIBROSIS
     Dosage: TAKE 3 CAPSULES
     Route: 048
     Dates: start: 201601
  3. OMEPRAZOLE. [Concomitant]
     Active Substance: OMEPRAZOLE
     Route: 065
  4. MUCINEX [Concomitant]
     Active Substance: GUAIFENESIN
     Dosage: ER
     Route: 065
  5. PREDNISONE. [Concomitant]
     Active Substance: PREDNISONE
  6. BUDESONIDE. [Concomitant]
     Active Substance: BUDESONIDE
     Dosage: 1MG/2ML
     Route: 065
  7. PERFOROMIST [Concomitant]
     Active Substance: FORMOTEROL FUMARATE DIHYDRATE
     Route: 065
  8. TESSALON [Concomitant]
     Active Substance: BENZONATATE
     Route: 065
  9. CEFUROXIME. [Concomitant]
     Active Substance: CEFUROXIME
     Route: 065

REACTIONS (4)
  - Bronchitis [Not Recovered/Not Resolved]
  - Drug ineffective [Unknown]
  - Fall [Unknown]
  - Respiratory tract infection [Unknown]

NARRATIVE: CASE EVENT DATE: 201702
